FAERS Safety Report 17927790 (Version 1)
Quarter: 2020Q2

REPORT INFORMATION
  Report Type: Spontaneous
  Country: US (occurrence: US)
  Receive Date: 20200621
  Receipt Date: 20200621
  Transmission Date: 20200714
  Serious: Yes (Death, Hospitalization)
  Sender: FDA-Public Use
  Company Number: None

PATIENT
  Age: 9 Year
  Sex: Male
  Weight: 21.8 kg

DRUGS (6)
  1. DAUNORUBICIN [Suspect]
     Active Substance: DAUNORUBICIN
     Dates: end: 20200603
  2. ONCASPAR [Suspect]
     Active Substance: PEGASPARGASE
     Dates: end: 20200516
  3. METHOTREXATE. [Suspect]
     Active Substance: METHOTREXATE
     Dates: end: 20200611
  4. DEXAMETHASONE. [Suspect]
     Active Substance: DEXAMETHASONE
     Dates: end: 20200527
  5. CYTARABINE. [Suspect]
     Active Substance: CYTARABINE
     Dates: end: 20200512
  6. VINCRISTINE SULFATE. [Suspect]
     Active Substance: VINCRISTINE SULFATE
     Dates: end: 20200527

REACTIONS (11)
  - Lung opacity [None]
  - Tachypnoea [None]
  - Tachycardia [None]
  - Cough [None]
  - Haemoglobin decreased [None]
  - Pyrexia [None]
  - Haemoptysis [None]
  - Pulmonary haemorrhage [None]
  - Respiratory distress [None]
  - Hypoxia [None]
  - Agitation [None]

NARRATIVE: CASE EVENT DATE: 20200616
